FAERS Safety Report 15408500 (Version 3)
Quarter: 2018Q4

REPORT INFORMATION
  Report Type: Report from Study
  Country: JP (occurrence: JP)
  Receive Date: 20180920
  Receipt Date: 20181016
  Transmission Date: 20190204
  Serious: Yes (Hospitalization)
  Sender: FDA-Public Use
  Company Number: JP-CELGENEUS-JPN-20180905455

PATIENT
  Age: 77 Year
  Sex: Male

DRUGS (46)
  1. ABRAXANE [Suspect]
     Active Substance: PACLITAXEL
     Dosage: 100 MILLIGRAM/SQ. METER
     Route: 042
     Dates: start: 20180629, end: 20180629
  2. TREMELIMUMAB. [Concomitant]
     Active Substance: TREMELIMUMAB
     Dosage: 75 MILLIGRAM
     Route: 042
     Dates: start: 20180607, end: 20180607
  3. CLOPIDOGREL SULFATE [Concomitant]
     Active Substance: CLOPIDOGREL BISULFATE
     Indication: MYOCARDIAL INFARCTION
     Dosage: 75 MILLIGRAM
     Route: 048
  4. DEXAMETHASONE SODIUM PHOSPHATE. [Concomitant]
     Active Substance: DEXAMETHASONE SODIUM PHOSPHATE
     Indication: PROPHYLAXIS
     Dosage: 6.6 MILLIGRAM
     Route: 042
     Dates: start: 20180516
  5. BETAMETHASONE/D-CHLORPHENIRAMINE MALEATE [Concomitant]
     Indication: RASH
     Dosage: 2 TABLET
     Route: 048
     Dates: start: 20180713
  6. MAGNESIUM OXIDE. [Concomitant]
     Active Substance: MAGNESIUM OXIDE
     Indication: CONSTIPATION
     Dosage: 2970 MILLIGRAM
     Route: 048
     Dates: start: 20180505
  7. BEPOTASTINE [Concomitant]
     Active Substance: BEPOTASTINE
     Indication: ASTHMA
     Dosage: 20 MILLIGRAM
     Route: 048
  8. ENALAPRIL MALEATE. [Concomitant]
     Active Substance: ENALAPRIL MALEATE
     Indication: HYPERTENSION
     Dosage: 5 MILLIGRAM
     Route: 048
  9. PALONOSETRON HYDROCHLORIDE. [Concomitant]
     Active Substance: PALONOSETRON HYDROCHLORIDE
     Indication: PROPHYLAXIS
     Dosage: .75 MILLIGRAM
     Route: 042
     Dates: start: 20180516
  10. SODIUM PICOSULFATE [Concomitant]
     Active Substance: SODIUM PICOSULFATE
     Indication: CONSTIPATION
     Dosage: 12 MILLIGRAM
     Route: 048
     Dates: start: 20180521
  11. ABRAXANE [Suspect]
     Active Substance: PACLITAXEL
     Dosage: 100 MILLIGRAM/SQ. METER
     Route: 042
     Dates: start: 20180803, end: 20180803
  12. ROSUVASTATIN CALCIUM. [Concomitant]
     Active Substance: ROSUVASTATIN CALCIUM
     Indication: DYSLIPIDAEMIA
     Dosage: 2.5 MILLIGRAM
     Route: 048
  13. APREPITANT. [Concomitant]
     Active Substance: APREPITANT
     Indication: PROPHYLAXIS
     Dosage: 125 MILLIGRAM
     Route: 048
     Dates: start: 20180516
  14. APREPITANT. [Concomitant]
     Active Substance: APREPITANT
     Dosage: 80 MILLIGRAM
     Route: 048
     Dates: start: 20180518
  15. ABRAXANE [Suspect]
     Active Substance: PACLITAXEL
     Dosage: 100 MILLIGRAM/SQ. METER
     Route: 042
     Dates: start: 20180727, end: 20180727
  16. CARBOPLATIN. [Concomitant]
     Active Substance: CARBOPLATIN
     Indication: NON-SMALL CELL LUNG CANCER
     Dosage: 6.0 AUC
     Route: 042
     Dates: start: 20180516, end: 20180516
  17. CARBOPLATIN. [Concomitant]
     Active Substance: CARBOPLATIN
     Dosage: 6.0 AUC
     Route: 042
     Dates: start: 20180607, end: 20180607
  18. MEDI4736 (DURVALUMAB) [Concomitant]
     Active Substance: DURVALUMAB
     Indication: NON-SMALL CELL LUNG CANCER
     Dosage: 1500 MILLIGRAM
     Route: 042
     Dates: start: 20180516, end: 20180516
  19. MEDI4736 (DURVALUMAB) [Concomitant]
     Active Substance: DURVALUMAB
     Dosage: 1500 MILLIGRAM
     Route: 042
     Dates: start: 20180607, end: 20180607
  20. NICARDIPINE HYDROCHLORIDE. [Concomitant]
     Active Substance: NICARDIPINE HYDROCHLORIDE
     Indication: HYPERTENSION
     Dosage: 180 MILLIGRAM
     Route: 048
  21. CARBOPLATIN. [Concomitant]
     Active Substance: CARBOPLATIN
     Dosage: 6.0 AUC
     Route: 042
     Dates: start: 20180629, end: 20180629
  22. TIOTROPIUM BROMIDE [Concomitant]
     Active Substance: TIOTROPIUM BROMIDE
     Indication: ASTHMA
     Dosage: 50 MICROGRAM
     Route: 055
  23. APREPITANT. [Concomitant]
     Active Substance: APREPITANT
     Dosage: 80 MILLIGRAM
     Route: 048
     Dates: start: 20180517
  24. ABRAXANE [Suspect]
     Active Substance: PACLITAXEL
     Dosage: 100 MILLIGRAM/SQ. METER
     Route: 042
     Dates: start: 20180523, end: 20180523
  25. ABRAXANE [Suspect]
     Active Substance: PACLITAXEL
     Dosage: 100 MILLIGRAM/SQ. METER
     Route: 042
     Dates: start: 20180706, end: 20180706
  26. ABRAXANE [Suspect]
     Active Substance: PACLITAXEL
     Dosage: 100 MILLIGRAM/SQ. METER
     Route: 042
     Dates: start: 20180720, end: 20180720
  27. CARBOPLATIN. [Concomitant]
     Active Substance: CARBOPLATIN
     Dosage: 6.0 AUC
     Route: 042
     Dates: start: 20180720, end: 20180720
  28. MEDI4736 (DURVALUMAB) [Concomitant]
     Active Substance: DURVALUMAB
     Dosage: 1500 MILLIGRAM
     Route: 042
     Dates: start: 20180720, end: 20180720
  29. TREMELIMUMAB. [Concomitant]
     Active Substance: TREMELIMUMAB
     Dosage: 75 MILLIGRAM
     Route: 042
     Dates: start: 20180720, end: 20180720
  30. SENNOSIDE A+B CALCIUM [Concomitant]
     Active Substance: SENNOSIDES A AND B
     Indication: CONSTIPATION
     Dosage: 12 MILLIGRAM
     Route: 048
     Dates: start: 20180617
  31. KETOPROFEN. [Concomitant]
     Active Substance: KETOPROFEN
     Indication: CANCER PAIN
     Dosage: 120 MILLIGRAM
     Route: 062
  32. FEXOFENADINE HYDROCHLORIDE. [Concomitant]
     Active Substance: FEXOFENADINE HYDROCHLORIDE
     Indication: RASH
     Dosage: 240 MILLIGRAM
     Route: 048
     Dates: start: 20180720
  33. ABRAXANE [Suspect]
     Active Substance: PACLITAXEL
     Indication: NON-SMALL CELL LUNG CANCER
     Dosage: 100 MILLIGRAM/SQ. METER
     Route: 042
     Dates: start: 20180516, end: 20180516
  34. ABRAXANE [Suspect]
     Active Substance: PACLITAXEL
     Dosage: 100 MILLIGRAM/SQ. METER
     Route: 042
     Dates: start: 20180607, end: 20180607
  35. TREMELIMUMAB. [Concomitant]
     Active Substance: TREMELIMUMAB
     Indication: NON-SMALL CELL LUNG CANCER
     Dosage: 75 MILLIGRAM
     Route: 042
     Dates: start: 20180516, end: 20180516
  36. ALLOPURINOL. [Concomitant]
     Active Substance: ALLOPURINOL
     Indication: HYPERURICAEMIA
     Dosage: 100 MILLIGRAM
     Route: 048
  37. MOSAPRIDE CITRATE [Concomitant]
     Active Substance: MOSAPRIDE CITRATE
     Indication: CHRONIC GASTRITIS
     Dosage: 20 MILLIGRAM
     Route: 048
  38. ESOMEPRAZOLE MAGNESIUM. [Concomitant]
     Active Substance: ESOMEPRAZOLE MAGNESIUM
     Indication: GASTROOESOPHAGEAL REFLUX DISEASE
     Dosage: 10 MILLIGRAM
     Route: 048
     Dates: start: 20180525
  39. ABRAXANE [Suspect]
     Active Substance: PACLITAXEL
     Dosage: 100 MILLIGRAM/SQ. METER
     Route: 042
     Dates: start: 20180601, end: 20180601
  40. ABRAXANE [Suspect]
     Active Substance: PACLITAXEL
     Dosage: 100 MILLIGRAM/SQ. METER
     Route: 042
     Dates: start: 20180616, end: 20180616
  41. ABRAXANE [Suspect]
     Active Substance: PACLITAXEL
     Dosage: 100 MILLIGRAM/SQ. METER
     Route: 042
     Dates: start: 20180622, end: 20180622
  42. MEDI4736 (DURVALUMAB) [Concomitant]
     Active Substance: DURVALUMAB
     Dosage: 1500 MILLIGRAM
     Route: 042
     Dates: start: 20180629, end: 20180629
  43. MEDI4736 (DURVALUMAB) [Concomitant]
     Active Substance: DURVALUMAB
     Dosage: 1500 MILLIGRAM
     Route: 042
     Dates: start: 20180810, end: 20180810
  44. TREMELIMUMAB. [Concomitant]
     Active Substance: TREMELIMUMAB
     Dosage: 75 MILLIGRAM
     Route: 042
     Dates: start: 20180629, end: 20180629
  45. BETAMETHASONE. [Concomitant]
     Active Substance: BETAMETHASONE
     Indication: RASH
     Dosage: .36 PERCENT
     Route: 062
     Dates: start: 20180720
  46. LOXOPROFEN SODIUM [Concomitant]
     Active Substance: LOXOPROFEN SODIUM
     Indication: PYREXIA
     Dosage: 60 MILLIGRAM
     Route: 048
     Dates: start: 20180727

REACTIONS (1)
  - Adrenal insufficiency [Recovered/Resolved]

NARRATIVE: CASE EVENT DATE: 20180907
